FAERS Safety Report 4851532-3 (Version None)
Quarter: 2005Q4

REPORT INFORMATION
  Report Type: 
  Country: None (occurrence: None)
  Receive Date: 20051212
  Receipt Date: 20051129
  Transmission Date: 20060501
  Serious: Yes (Other)
  Sender: FDA-Public Use
  Company Number: US-ROCHE-426799

PATIENT
  Age: 64 Year
  Sex: Female

DRUGS (3)
  1. PEGASYS [Suspect]
     Route: 050
     Dates: start: 20050926, end: 20051115
  2. COPEGUS [Suspect]
     Dosage: 2AM, 2PM.
     Route: 048
     Dates: start: 20050926, end: 20051115
  3. HYDROCODONE [Concomitant]
     Indication: ARTHRITIS
     Route: 048

REACTIONS (1)
  - HEMIPLEGIA [None]
